FAERS Safety Report 5711615-2 (Version None)
Quarter: 2008Q2

REPORT INFORMATION
  Report Type: 
  Country: None (occurrence: None)
  Receive Date: 20080416
  Receipt Date: 20080331
  Transmission Date: 20081010
  Serious: Yes (Congenital Anomaly)
  Sender: FDA-Public Use
  Company Number: S08-UKI-01402-02

PATIENT

DRUGS (2)
  1. ESCITALOPRAM [Suspect]
     Dates: start: 20070101
  2. ACETAMINOPHEN W/ CODEINE [Concomitant]

REACTIONS (2)
  - DIAPHRAGMATIC HERNIA [None]
  - DRUG EXPOSURE DURING PREGNANCY [None]
